FAERS Safety Report 4873110-2 (Version None)
Quarter: 2005Q4

REPORT INFORMATION
  Report Type: 
  Country: None (occurrence: None)
  Receive Date: 20051201
  Receipt Date: 20050817
  Transmission Date: 20060501
  Serious: No
  Sender: FDA-Public Use
  Company Number: 2005PV001250

PATIENT
  Age: 47 Year
  Sex: Female
  Weight: 107.5025 kg

DRUGS (7)
  1. BYETTA [Suspect]
     Indication: DIABETES MELLITUS NON-INSULIN-DEPENDENT
     Dosage: 5 MCG; BID; SC
     Route: 058
     Dates: start: 20050815
  2. DIAZIDE [Concomitant]
  3. LEXAPRO [Concomitant]
  4. GLUCOPHAGE XR [Concomitant]
  5. TIZANIDINE HCL [Concomitant]
  6. ALEVE [Concomitant]
  7. MULTIVITAMIN [Concomitant]

REACTIONS (2)
  - FATIGUE [None]
  - SENSATION OF HEAVINESS [None]
